FAERS Safety Report 10098119 (Version 2)
Quarter: 2014Q3

REPORT INFORMATION
  Report Type: Spontaneous
  Country: JP (occurrence: None)
  Receive Date: 20140421
  Receipt Date: 20140703
  Transmission Date: 20150326
  Serious: Yes (Hospitalization, Other)
  Sender: FDA-Public Use
  Company Number: ABR_01588_2014

PATIENT
  Age: 29 Year
  Sex: Female

DRUGS (2)
  1. RITODRINE (HYDROCHLORIDE) [Concomitant]
  2. ERYTHROCIN [Suspect]
     Active Substance: ERYTHROMYCIN LACTOBIONATE
     Indication: INFECTION PROPHYLAXIS
     Route: 048
     Dates: start: 20030720, end: 20030721

REACTIONS (2)
  - Abortion spontaneous [None]
  - Maternal drugs affecting foetus [None]

NARRATIVE: CASE EVENT DATE: 20030720
